FAERS Safety Report 4899211-0 (Version None)
Quarter: 2006Q1

REPORT INFORMATION
  Report Type: 
  Country: None (occurrence: None)
  Receive Date: 20060106
  Receipt Date: 20051019
  Transmission Date: 20060701
  Serious: Yes (Other)
  Sender: FDA-Public Use
  Company Number: HQWYE203224OCT05

PATIENT
  Age: 68 Year
  Sex: Male
  Weight: 122.13 kg

DRUGS (5)
  1. PRIMATENE MIST [Suspect]
     Indication: ASTHMA
     Dosage: 1 PUFF ONCE, INHALATION
     Route: 055
  2. PRIMATENE MIST [Suspect]
     Indication: CHRONIC OBSTRUCTIVE PULMONARY DISEASE
     Dosage: 1 PUFF ONCE, INHALATION
     Route: 055
  3. ACETAMINOPHEN [Concomitant]
  4. LASIX [Concomitant]
  5. ROBITUSSIN (GUAIFENESIN) [Concomitant]

REACTIONS (1)
  - CHOKING [None]
